FAERS Safety Report 7537326-9 (Version None)
Quarter: 2011Q2

REPORT INFORMATION
  Report Type: 
  Country: None (occurrence: None)
  Receive Date: 20110609
  Receipt Date: 20110530
  Transmission Date: 20111010
  Serious: Yes (Other)
  Sender: FDA-Public Use
  Company Number: DE-PFIZER INC-2011125102

PATIENT
  Age: 48 Year
  Sex: Female

DRUGS (6)
  1. ATARAX [Suspect]
     Dosage: 20 DF, UNK
     Route: 048
  2. BACLOFEN [Suspect]
     Dosage: 25 DF, UNK
     Route: 048
  3. ALCOHOL [Suspect]
  4. MIRTAZAPINE [Suspect]
     Dosage: 60 DF, UNK
     Route: 048
  5. MIRTAZAPINE [Suspect]
     Dosage: 40 DF, UNK
  6. METOPROLOL TARTRATE [Suspect]
     Dosage: 100 DF, UNK
     Route: 048

REACTIONS (4)
  - DIASTOLIC HYPOTENSION [None]
  - SOMNOLENCE [None]
  - HYPOTENSION [None]
  - SUICIDE ATTEMPT [None]
